FAERS Safety Report 10925706 (Version 1)
Quarter: 2015Q1

REPORT INFORMATION
  Report Type: Spontaneous
  Country: US (occurrence: None)
  Receive Date: 20150129
  Receipt Date: 20150129
  Transmission Date: 20150721
  Serious: Yes (Hospitalization)
  Sender: FDA-Public Use
  Company Number: A-US2014-106787

PATIENT
  Age: 44 Year
  Sex: Female

DRUGS (4)
  1. OPSUMIT [Suspect]
     Active Substance: MACITENTAN
     Indication: PULMONARY ARTERIAL HYPERTENSION
     Route: 048
     Dates: start: 201407
  2. REMODULIN [Concomitant]
     Active Substance: TREPROSTINIL
  3. REVATIO (SILDENAFIL CITRATE) [Concomitant]
  4. FLOLAN (EPOPROSTENOL SODIUM) [Concomitant]

REACTIONS (3)
  - Right ventricular failure [None]
  - Disease progression [None]
  - Syncope [None]

NARRATIVE: CASE EVENT DATE: 20141013
